FAERS Safety Report 7250106-7 (Version None)
Quarter: 2011Q1

REPORT INFORMATION
  Report Type: 
  Country: None (occurrence: None)
  Receive Date: 20110118
  Receipt Date: 20110107
  Transmission Date: 20110831
  Serious: Yes (Other)
  Sender: FDA-Public Use
  Company Number: 2011SP001062

PATIENT
  Sex: Female

DRUGS (1)
  1. MARVELON 28 (DESOGESTREL / ETHINYLESTRADIOL / 00570801/ ) [Suspect]
     Indication: CONTRACEPTION
     Dosage: 1 DF;QD;PO
     Route: 048
     Dates: start: 20090101

REACTIONS (3)
  - ENTEROCOLITIS [None]
  - VOMITING [None]
  - MENSTRUAL DISORDER [None]
